FAERS Safety Report 16062802 (Version 2)
Quarter: 2019Q3

REPORT INFORMATION
  Report Type: Spontaneous
  Country: GR (occurrence: GR)
  Receive Date: 20190312
  Receipt Date: 20190701
  Transmission Date: 20191004
  Serious: Yes (Hospitalization)
  Sender: FDA-Public Use
  Company Number: GR-CERECOR, INC.-2019CER00038

PATIENT
  Age: 1 Day
  Sex: Male
  Weight: 1.51 kg

DRUGS (2)
  1. PREDNISOLONE. [Suspect]
     Active Substance: PREDNISOLONE
     Indication: PEMPHIGUS
     Dosage: UP TO 30 MG, 1X/DAY
     Route: 064
  2. LOW WEIGHT MOLECULAR HEPARIN [Concomitant]
     Indication: FACTOR V LEIDEN MUTATION
     Route: 064

REACTIONS (2)
  - Foetal heart rate deceleration abnormality [Recovered/Resolved]
  - Premature baby [Recovered/Resolved]
